FAERS Safety Report 4882264-3 (Version None)
Quarter: 2006Q1

REPORT INFORMATION
  Report Type: 
  Country: None (occurrence: None)
  Receive Date: 20060113
  Receipt Date: 20060113
  Transmission Date: 20060701
  Serious: Yes (Hospitalization)
  Sender: FDA-Public Use
  Company Number: None

PATIENT
  Age: 79 Year
  Sex: Male
  Weight: 71.4869 kg

DRUGS (11)
  1. IRINOTECAN HCL [Suspect]
     Indication: SQUAMOUS CELL CARCINOMA
     Dosage: 65 MG/M2 IV Q W X4
     Route: 042
     Dates: start: 20030902
  2. IRINOTECAN HCL [Suspect]
     Indication: SQUAMOUS CELL CARCINOMA
     Dosage: 65 MG/M2 IV Q W X4
     Route: 042
     Dates: start: 20030909
  3. CISPLATIN [Suspect]
     Indication: SQUAMOUS CELL CARCINOMA
     Dosage: 30 MG/M2 IV Q WK X4
     Route: 042
     Dates: start: 20030902
  4. CISPLATIN [Suspect]
     Indication: SQUAMOUS CELL CARCINOMA
     Dosage: 30 MG/M2 IV Q WK X4
     Route: 042
     Dates: start: 20030909
  5. CELEBREX [Concomitant]
  6. PREVACID [Concomitant]
  7. HYDROCODONE/APP [Concomitant]
  8. ZOLOFT [Concomitant]
  9. TRANZODONE [Concomitant]
  10. MORPHINE [Concomitant]
  11. DIFLUCAN [Concomitant]

REACTIONS (5)
  - DEHYDRATION [None]
  - HAEMOPTYSIS [None]
  - INFECTION [None]
  - NAUSEA [None]
  - VOMITING [None]
